FAERS Safety Report 18480358 (Version 1)
Quarter: 2020Q4

REPORT INFORMATION
  Report Type: Report from Study
  Country: IN (occurrence: IN)
  Receive Date: 20201109
  Receipt Date: 20201109
  Transmission Date: 20210114
  Serious: Yes (Death, Other)
  Sender: FDA-Public Use
  Company Number: IN-PFIZER INC-2019261680

PATIENT
  Age: 71 Year
  Sex: Male
  Weight: 60 kg

DRUGS (1)
  1. DACOMITINIB [Suspect]
     Active Substance: DACOMITINIB
     Indication: NON-SMALL CELL LUNG CANCER STAGE IV
     Dosage: UNK
     Route: 048
     Dates: start: 20190416

REACTIONS (8)
  - Wound infection [Unknown]
  - Wound haemorrhage [Unknown]
  - Oedema peripheral [Unknown]
  - Pyrexia [Unknown]
  - Dyspnoea [Unknown]
  - Death [Fatal]
  - Diarrhoea [Recovered/Resolved]
  - Stomatitis [Recovered/Resolved]

NARRATIVE: CASE EVENT DATE: 20190425
